FAERS Safety Report 8544183-0 (Version None)
Quarter: 2012Q3

REPORT INFORMATION
  Report Type: 
  Country: None (occurrence: None)
  Receive Date: 20120718
  Receipt Date: 20120718
  Transmission Date: 20120928
  Serious: No
  Sender: FDA-Public Use
  Company Number: None

PATIENT

DRUGS (1)
  1. HEPARIN SODIUM [Suspect]
     Indication: CATHETERISATION CARDIAC
     Dosage: 5,000 UNITS ONCE IV BOLUS
     Route: 040
     Dates: start: 20120711, end: 20120711

REACTIONS (1)
  - COAGULATION TIME SHORTENED [None]
